FAERS Safety Report 4837691-7 (Version None)
Quarter: 2005Q4

REPORT INFORMATION
  Report Type: 
  Country: None (occurrence: None)
  Receive Date: 20051128
  Receipt Date: 20050121
  Transmission Date: 20060501
  Serious: Yes (Death, Other)
  Sender: FDA-Public Use
  Company Number: US-MERCK-0501USA03355

PATIENT
  Age: 51 Year
  Sex: Male
  Weight: 68 kg

DRUGS (3)
  1. VIOXX [Suspect]
     Indication: JOINT INJURY
     Route: 048
     Dates: start: 20010801, end: 20010808
  2. AMBIEN [Concomitant]
     Route: 065
  3. ALLERFRIM [Concomitant]
     Route: 065

REACTIONS (16)
  - ARTERIOSCLEROSIS CORONARY ARTERY [None]
  - CARDIO-RESPIRATORY ARREST [None]
  - CARDIOMEGALY [None]
  - HYPERKALAEMIA [None]
  - HYPERTENSION [None]
  - HYPERTENSIVE HEART DISEASE [None]
  - HYPOVOLAEMIA [None]
  - MYOCARDIAL INFARCTION [None]
  - PANCREATITIS ACUTE [None]
  - PANCREATITIS HAEMORRHAGIC [None]
  - PARAPLEGIA [None]
  - PNEUMONIA [None]
  - PULMONARY CONGESTION [None]
  - PULMONARY OEDEMA [None]
  - RENAL FAILURE CHRONIC [None]
  - THROMBOSIS [None]
